FAERS Safety Report 25319246 (Version 1)
Quarter: 2025Q2

REPORT INFORMATION
  Report Type: Report from Study
  Country: US (occurrence: US)
  Receive Date: 20250515
  Receipt Date: 20250515
  Transmission Date: 20250716
  Serious: Yes (Death)
  Sender: PFIZER
  Company Number: US-PFIZER INC-PV202500056915

PATIENT

DRUGS (5)
  1. FENTANYL CITRATE [Suspect]
     Active Substance: FENTANYL CITRATE
  2. ALPRAZOLAM [Suspect]
     Active Substance: ALPRAZOLAM
  3. GABAPENTIN [Suspect]
     Active Substance: GABAPENTIN
  4. RAVULIZUMAB [Concomitant]
     Active Substance: RAVULIZUMAB
     Indication: Myasthenia gravis
     Route: 042
  5. RAVULIZUMAB [Concomitant]
     Active Substance: RAVULIZUMAB
     Route: 042

REACTIONS (1)
  - Toxicity to various agents [Fatal]
